FAERS Safety Report 7177370-7 (Version None)
Quarter: 2010Q4

REPORT INFORMATION
  Report Type: 
  Country: None (occurrence: None)
  Receive Date: 20101220
  Receipt Date: 20101207
  Transmission Date: 20110411
  Serious: Yes (Hospitalization)
  Sender: FDA-Public Use
  Company Number: PHHY2010US83228

PATIENT
  Age: 39 Year
  Sex: Female
  Weight: 79 kg

DRUGS (11)
  1. MYFORTIC [Suspect]
     Indication: RENAL TRANSPLANT
     Dosage: 720 MG, DAILY
     Route: 048
     Dates: start: 20050516
  2. MYFORTIC [Suspect]
     Indication: IMMUNOSUPPRESSION
  3. NEORAL [Suspect]
     Indication: RENAL TRANSPLANT
     Dosage: 75 MG, UNK
     Route: 048
     Dates: start: 20050516
  4. PROZAC [Concomitant]
     Indication: EMOTIONAL DISORDER
     Dosage: 20 MG, DAILY
     Route: 048
     Dates: start: 19970415
  5. LIPITOR [Concomitant]
     Indication: ADJUVANT THERAPY
     Dosage: 20 MG, DAILY
     Route: 048
     Dates: start: 19920515
  6. PREDNISONE [Concomitant]
     Indication: IMMUNOSUPPRESSION
     Dosage: 50 MG, DAILY
     Route: 048
     Dates: start: 20050516
  7. KLONOPIN [Concomitant]
     Indication: INSOMNIA
     Dosage: 1 MG, DAILY
     Route: 048
     Dates: start: 19930615
  8. OMEPRAZOLE [Concomitant]
     Indication: GASTROINTESTINAL DISORDER
     Dosage: 20 MG, DAILY
     Route: 048
     Dates: start: 19920516
  9. ASPIRIN [Concomitant]
     Indication: ATHEROSCLEROSIS PROPHYLAXIS
     Dosage: 81 MG, DAILY
     Route: 048
     Dates: start: 20050516
  10. COLACE [Concomitant]
     Indication: GASTROINTESTINAL DISORDER
     Dosage: 200 MG, DAILY
     Route: 048
     Dates: start: 19920415
  11. LASIX [Concomitant]
     Indication: OEDEMA
     Dosage: 40 MG, DAILY
     Route: 048
     Dates: start: 19860515

REACTIONS (1)
  - GALLBLADDER OPERATION [None]
